FAERS Safety Report 20068302 (Version 2)
Quarter: 2021Q4

REPORT INFORMATION
  Report Type: Report from Study
  Country: AT (occurrence: AT)
  Receive Date: 20211115
  Receipt Date: 20211129
  Transmission Date: 20220303
  Serious: Yes (Hospitalization)
  Sender: FDA-Public Use
  Company Number: AT-AstraZeneca-2021A782825

PATIENT
  Sex: Male

DRUGS (11)
  1. ATORVASTATIN CALCIUM [Suspect]
     Active Substance: ATORVASTATIN CALCIUM
     Dosage: UNK
  2. EXELON PATCH [Suspect]
     Active Substance: RIVASTIGMINE
  3. GINKGO [Suspect]
     Active Substance: GINKGO
  4. SEROQUEL [Suspect]
     Active Substance: QUETIAPINE FUMARATE
     Route: 048
  5. FENOTEROL HYDROBROMIDE\IPRATROPIUM BROMIDE [Suspect]
     Active Substance: FENOTEROL HYDROBROMIDE\IPRATROPIUM BROMIDE
  6. FINASTERIDE [Suspect]
     Active Substance: FINASTERIDE
  7. TORSEMIDE [Suspect]
     Active Substance: TORSEMIDE
  8. CANDESARTAN [Suspect]
     Active Substance: CANDESARTAN
  9. BENSERAZIDE HYDROCHLORIDE\LEVODOPA [Suspect]
     Active Substance: BENSERAZIDE HYDROCHLORIDE\LEVODOPA
  10. LAMOTRIGINE [Suspect]
     Active Substance: LAMOTRIGINE
  11. DIPYRONE [Suspect]
     Active Substance: DIPYRONE

REACTIONS (1)
  - Fall [Unknown]
